FAERS Safety Report 7908744-1 (Version None)
Quarter: 2011Q4

REPORT INFORMATION
  Report Type: 
  Country: None (occurrence: None)
  Receive Date: 20111111
  Receipt Date: 20111027
  Transmission Date: 20120403
  Serious: Yes (Other)
  Sender: FDA-Public Use
  Company Number: PHEH2011US05858

PATIENT
  Sex: Female

DRUGS (1)
  1. TASIGNA [Suspect]
     Indication: CHRONIC MYELOID LEUKAEMIA
     Dosage: 200 MG, BID
     Route: 048
     Dates: start: 20110725

REACTIONS (6)
  - PAIN [None]
  - VISUAL IMPAIRMENT [None]
  - RETINAL TEAR [None]
  - DIPLOPIA [None]
  - HYPERGLYCAEMIA [None]
  - ARTHRITIS [None]
